FAERS Safety Report 7591792-1 (Version None)
Quarter: 2011Q3

REPORT INFORMATION
  Report Type: 
  Country: None (occurrence: None)
  Receive Date: 20110701
  Receipt Date: 20110701
  Transmission Date: 20111222
  Serious: Yes (Life-Threatening, Hospitalization, Other)
  Sender: FDA-Public Use
  Company Number: None

PATIENT
  Age: 57 Year
  Sex: Female
  Weight: 77.1115 kg

DRUGS (4)
  1. HYDROXYZINE PAMOATE [Suspect]
     Indication: DEPRESSION
     Dosage: 1 1X
     Dates: start: 20090101, end: 20110601
  2. HYDROXYZINE PAMOATE [Suspect]
     Indication: STRESS
     Dosage: 1 1X
     Dates: start: 20090101, end: 20110601
  3. ALPRAZOLAM [Suspect]
     Indication: DEPRESSION
     Dosage: 1 1X A DAY
     Dates: start: 20090101, end: 20110601
  4. ALPRAZOLAM [Suspect]
     Indication: STRESS
     Dosage: 1 1X A DAY
     Dates: start: 20090101, end: 20110601

REACTIONS (5)
  - RIB FRACTURE [None]
  - CONVULSION [None]
  - TOOTH LOSS [None]
  - FALL [None]
  - AMNESIA [None]
